FAERS Safety Report 24264679 (Version 1)
Quarter: 2024Q3

REPORT INFORMATION
  Report Type: Spontaneous
  Country: US (occurrence: US)
  Receive Date: 20240829
  Receipt Date: 20240829
  Transmission Date: 20241016
  Serious: Yes (Other)
  Sender: CATALYST PHARMA
  Company Number: US-CATALYST PHARMACEUTICALS, INC-EC-2022-112812

PATIENT
  Sex: Female

DRUGS (2)
  1. FYCOMPA [Suspect]
     Active Substance: PERAMPANEL
     Indication: Epilepsy
     Dosage: 6 MILLIGRAM, QD
     Route: 048
     Dates: start: 2021, end: 202209
  2. FYCOMPA [Suspect]
     Active Substance: PERAMPANEL
     Dosage: 1 TABLET EVERY DAY (6 MG TABLET)
     Route: 048

REACTIONS (38)
  - Lower limb fracture [Unknown]
  - Seizure [Not Recovered/Not Resolved]
  - Fall [Unknown]
  - Lower respiratory tract infection [Unknown]
  - Brain fog [Unknown]
  - Swelling [Unknown]
  - Migraine [Unknown]
  - Aphonia [Unknown]
  - Ear pain [Unknown]
  - Chest discomfort [Unknown]
  - Chest discomfort [Unknown]
  - Gait inability [Unknown]
  - Pain [Unknown]
  - Hyperacusis [Unknown]
  - Pharyngitis [Unknown]
  - Rhinitis [Unknown]
  - Secretion discharge [Not Recovered/Not Resolved]
  - Wheelchair user [Not Recovered/Not Resolved]
  - Lower limb fracture [Not Recovered/Not Resolved]
  - Amnesia [Not Recovered/Not Resolved]
  - Teeth brittle [Not Recovered/Not Resolved]
  - Gingival disorder [Not Recovered/Not Resolved]
  - COVID-19 [Not Recovered/Not Resolved]
  - Sinus disorder [Unknown]
  - Ear infection [Not Recovered/Not Resolved]
  - Sinusitis [Recovering/Resolving]
  - Nausea [Unknown]
  - Balance disorder [Unknown]
  - Cough [Unknown]
  - Illness [Unknown]
  - Arthralgia [Unknown]
  - Back pain [Unknown]
  - Gait disturbance [Unknown]
  - Anxiety [Unknown]
  - Disorientation [Unknown]
  - Fall [Unknown]
  - Fatigue [Not Recovered/Not Resolved]
  - Head injury [Not Recovered/Not Resolved]

NARRATIVE: CASE EVENT DATE: 20210101
